FAERS Safety Report 16185883 (Version 1)
Quarter: 2019Q2

REPORT INFORMATION
  Report Type: Spontaneous
  Country: US (occurrence: US)
  Receive Date: 20190411
  Receipt Date: 20190411
  Transmission Date: 20190711
  Serious: Yes (Other)
  Sender: FDA-Public Use
  Company Number: US-MTPC-MTDA2019-0045603

PATIENT

DRUGS (2)
  1. RADICAVA [Suspect]
     Active Substance: EDARAVONE
     Indication: AMYOTROPHIC LATERAL SCLEROSIS
     Dosage: 60 MILLIGRAM, ON 10 OF 14 DAYS, THEN 14 DAYS OFF
     Route: 065
     Dates: start: 201707, end: 201902
  2. RADICAVA [Suspect]
     Active Substance: EDARAVONE
     Dosage: 60 MILLIGRAM, ON 10 OF 14 DAYS, THEN 14 DAYS OFF
     Route: 065
     Dates: start: 20190325

REACTIONS (3)
  - White blood cell count decreased [Not Recovered/Not Resolved]
  - Neutropenia [Not Recovered/Not Resolved]
  - Lymphopenia [Not Recovered/Not Resolved]
